FAERS Safety Report 13362462 (Version 1)
Quarter: 2017Q1

REPORT INFORMATION
  Report Type: Spontaneous
  Country: US (occurrence: US)
  Receive Date: 20170322
  Receipt Date: 20170322
  Transmission Date: 20170429
  Serious: Yes (Other)
  Sender: FDA-Public Use
  Company Number: None

PATIENT
  Age: 60 Year
  Sex: Male
  Weight: 120.1 kg

DRUGS (16)
  1. TRAMADOL. [Concomitant]
     Active Substance: TRAMADOL
  2. GABAPENTIN. [Concomitant]
     Active Substance: GABAPENTIN
  3. APIXABAN [Concomitant]
     Active Substance: APIXABAN
  4. ATENOLOL.LIDOCAINE/PRILOCAINE [Concomitant]
  5. APAP/HYDROCODONE [Concomitant]
     Active Substance: ACETAMINOPHEN\HYDROCODONE
  6. LISINOPRIL. [Concomitant]
     Active Substance: LISINOPRIL
  7. ROSUVASTATIN. [Suspect]
     Active Substance: ROSUVASTATIN
     Indication: BLOOD CHOLESTEROL INCREASED
     Route: 048
  8. CHOLECALCIFEROL [Concomitant]
     Active Substance: CHOLECALCIFEROL
  9. ASA [Concomitant]
     Active Substance: ASPIRIN
  10. SALSALATE. [Concomitant]
     Active Substance: SALSALATE
  11. FISH OIL [Concomitant]
     Active Substance: FISH OIL
  12. SILDENAFIL. [Concomitant]
     Active Substance: SILDENAFIL
  13. AMLODIPINE [Concomitant]
     Active Substance: AMLODIPINE BESYLATE
  14. METFORMIN [Concomitant]
     Active Substance: METFORMIN HYDROCHLORIDE
  15. LORATADINE. [Concomitant]
     Active Substance: LORATADINE
  16. FLUTICASONE NASAL [Concomitant]
     Active Substance: FLUTICASONE

REACTIONS (2)
  - Product substitution issue [None]
  - Myalgia [None]

NARRATIVE: CASE EVENT DATE: 20170317
